FAERS Safety Report 6815638-1 (Version None)
Quarter: 2010Q3

REPORT INFORMATION
  Report Type: 
  Country: None (occurrence: None)
  Receive Date: 20100702
  Receipt Date: 20100628
  Transmission Date: 20110219
  Serious: Yes (Hospitalization)
  Sender: FDA-Public Use
  Company Number: US-GILEAD-2010-0030085

PATIENT
  Sex: Female
  Weight: 107.14 kg

DRUGS (10)
  1. LETAIRIS [Suspect]
     Indication: PULMONARY ARTERIAL HYPERTENSION
     Route: 048
     Dates: start: 20100401
  2. BUMEX [Concomitant]
  3. ATENOLOL [Concomitant]
  4. ACCUPRIL [Concomitant]
  5. ASPIRIN [Concomitant]
  6. METFORMIN HCL [Concomitant]
  7. METOLAZONE [Concomitant]
  8. CLONIDINE [Concomitant]
  9. TYLENOL [Concomitant]
  10. CENTRUM [Concomitant]

REACTIONS (1)
  - DRUG INTOLERANCE [None]
